FAERS Safety Report 10102967 (Version 2)
Quarter: 2014Q2

REPORT INFORMATION
  Report Type: Other
  Country: US (occurrence: US)
  Receive Date: 20140424
  Receipt Date: 20140611
  Transmission Date: 20141212
  Serious: Yes (Hospitalization, Other)
  Sender: FDA-Public Use
  Company Number: US-GSKPPD-2014GSK000066

PATIENT
  Age: 56 Year
  Sex: Female

DRUGS (8)
  1. AVANDIA [Suspect]
     Indication: DIABETES MELLITUS
     Route: 048
     Dates: start: 20060608, end: 20070416
  2. AVANDAMET [Suspect]
     Indication: DIABETES MELLITUS
     Dosage: 4MG 1000MG
     Route: 048
     Dates: start: 20070611, end: 20071210
  3. LISINOPRIL [Concomitant]
     Route: 048
  4. HYDROCHLOROTHIAZIDE [Concomitant]
     Route: 048
  5. ASPIRIN [Concomitant]
     Route: 048
  6. LIPITOR [Concomitant]
     Route: 048
  7. LOTENSIN [Concomitant]
     Route: 048
  8. VERAPAMIL [Concomitant]
     Route: 048

REACTIONS (1)
  - Cerebrovascular accident [Recovered/Resolved]
